FAERS Safety Report 13045999 (Version 3)
Quarter: 2017Q1

REPORT INFORMATION
  Report Type: Report from Study
  Country: US (occurrence: US)
  Receive Date: 20161220
  Receipt Date: 20170313
  Transmission Date: 20170428
  Serious: Yes (Hospitalization)
  Sender: FDA-Public Use
  Company Number: US-EMD SERONO-E2B_80055820

PATIENT
  Age: 45 Year
  Sex: Male

DRUGS (1)
  1. REBIF [Suspect]
     Active Substance: INTERFERON BETA-1A
     Indication: PRODUCT USED FOR UNKNOWN INDICATION
     Route: 058
     Dates: start: 20090610

REACTIONS (2)
  - Staphylococcal infection [Recovering/Resolving]
  - Injection site cellulitis [Recovering/Resolving]

NARRATIVE: CASE EVENT DATE: 20161103
